FAERS Safety Report 5868769-7 (Version None)
Quarter: 2008Q3

REPORT INFORMATION
  Report Type: 
  Country: None (occurrence: None)
  Receive Date: 20080902
  Receipt Date: 20080902
  Transmission Date: 20090109
  Serious: Yes (Hospitalization)
  Sender: FDA-Public Use
  Company Number: None

PATIENT
  Age: 64 Year
  Sex: Female
  Weight: 52.6173 kg

DRUGS (2)
  1. NITROFURANTOIN [Suspect]
     Indication: NEUROPATHY PERIPHERAL
     Dosage: 100 MG BID PO
     Route: 048
     Dates: start: 20080519, end: 20080526
  2. NITROFURANTOIN [Suspect]
     Indication: NEUROPATHY PERIPHERAL
     Dosage: 100 MG BID PO
     Route: 048
     Dates: start: 20080708, end: 20080710

REACTIONS (11)
  - ARTHRALGIA [None]
  - HYPERAESTHESIA [None]
  - HYPOAESTHESIA [None]
  - JOINT SWELLING [None]
  - LIVER FUNCTION TEST ABNORMAL [None]
  - NEUROPATHY PERIPHERAL [None]
  - OEDEMA PERIPHERAL [None]
  - PARAESTHESIA [None]
  - TEMPERATURE INTOLERANCE [None]
  - URINARY TRACT INFECTION [None]
  - VOMITING [None]
